FAERS Safety Report 9130421 (Version 2)
Quarter: 2013Q1

REPORT INFORMATION
  Report Type: Spontaneous
  Country: US (occurrence: US)
  Receive Date: 20130301
  Receipt Date: 20130330
  Transmission Date: 20140127
  Serious: Yes (Disabling, Other)
  Sender: FDA-Public Use
  Company Number: US-009507513-1302USA012585

PATIENT
  Age: 65 Year
  Sex: Female

DRUGS (5)
  1. EMEND [Suspect]
     Indication: HEAD AND NECK CANCER
     Dosage: 150 MG, ONCE
     Route: 042
     Dates: start: 20130220, end: 20130220
  2. EMEND [Suspect]
     Dosage: UNK
     Dates: start: 20130318
  3. DEXAMETHASONE [Suspect]
     Dosage: 20 MG, UNK
     Route: 042
     Dates: start: 20130220, end: 20130220
  4. CISPLATIN [Concomitant]
     Dosage: 100 MG/M2, UNK
     Route: 042
  5. ZOFRAN [Concomitant]
     Dosage: 16 MG, UNK
     Route: 042
     Dates: start: 20130220

REACTIONS (4)
  - Nausea [Recovered/Resolved]
  - Hypophagia [Recovered/Resolved]
  - Nausea [Recovered/Resolved]
  - Vomiting [Recovered/Resolved]
